FAERS Safety Report 20369416 (Version 2)
Quarter: 2022Q2

REPORT INFORMATION
  Report Type: Spontaneous
  Country: US (occurrence: US)
  Receive Date: 20220124
  Receipt Date: 20220509
  Transmission Date: 20220721
  Serious: No
  Sender: FDA-Public Use
  Company Number: US-CHEMOCENTRYX, INC.-2021USCCXI0005

PATIENT

DRUGS (9)
  1. TAVNEOS [Suspect]
     Active Substance: AVACOPAN
     Indication: Granulomatosis with polyangiitis
     Dosage: 30 MG, 2X/DAY
     Route: 048
     Dates: start: 20211123
  2. TAVNEOS [Suspect]
     Active Substance: AVACOPAN
     Indication: Renal disorder
     Dosage: 20 MG, 2X/DAY
     Route: 048
     Dates: start: 20211121, end: 20211122
  3. TAVNEOS [Suspect]
     Active Substance: AVACOPAN
     Dosage: 10 MG, 2X/DAY
     Route: 048
     Dates: start: 20211119, end: 20211120
  4. PREDNISONE [Concomitant]
     Active Substance: PREDNISONE
     Indication: Product used for unknown indication
     Dosage: 10 MG, BID
     Route: 065
  5. ELIQUIS [Concomitant]
     Active Substance: APIXABAN
     Indication: Product used for unknown indication
     Dosage: 5 MG, BID
     Route: 065
  6. THYROID COMPOUND MEDICINE (THYROID COMPOUND MEDICINE) [Concomitant]
     Indication: Product used for unknown indication
     Dosage: UNK, QD
     Route: 065
  7. ZINC [Concomitant]
     Active Substance: ZINC
     Indication: Product used for unknown indication
  8. VITAMIN D3 [Concomitant]
     Active Substance: CHOLECALCIFEROL
     Indication: Product used for unknown indication
  9. VITAMIN C [Concomitant]
     Active Substance: ASCORBIC ACID
     Indication: Product used for unknown indication

REACTIONS (4)
  - Hot flush [Recovering/Resolving]
  - Therapeutic response unexpected [Not Recovered/Not Resolved]
  - Night sweats [Recovering/Resolving]
  - Dizziness [Recovering/Resolving]

NARRATIVE: CASE EVENT DATE: 20211101
